FAERS Safety Report 13672711 (Version 1)
Quarter: 2017Q2

REPORT INFORMATION
  Report Type: Spontaneous
  Country: KR (occurrence: KR)
  Receive Date: 20170621
  Receipt Date: 20170621
  Transmission Date: 20170830
  Serious: Yes (Other)
  Sender: FDA-Public Use
  Company Number: KR-BAXTER-2017BAX023929

PATIENT
  Age: 62 Year
  Sex: Female

DRUGS (9)
  1. VINCRISTINE [Suspect]
     Active Substance: VINCRISTINE
     Indication: SOFT TISSUE SARCOMA
  2. VINCRISTINE [Suspect]
     Active Substance: VINCRISTINE
     Indication: RECURRENT CANCER
  3. DOXORUBICIN [Suspect]
     Active Substance: DOXORUBICIN
     Indication: RECURRENT CANCER
  4. VINCRISTINE [Suspect]
     Active Substance: VINCRISTINE
     Indication: SARCOMA METASTATIC
     Route: 065
  5. DOXORUBICIN [Suspect]
     Active Substance: DOXORUBICIN
     Indication: SOFT TISSUE SARCOMA
  6. HOLOXAN 1000MG INJ (IFOSFAMIDE) [Suspect]
     Active Substance: IFOSFAMIDE
     Indication: SARCOMA METASTATIC
     Route: 065
  7. HOLOXAN 1000MG INJ (IFOSFAMIDE) [Suspect]
     Active Substance: IFOSFAMIDE
     Indication: RECURRENT CANCER
  8. DOXORUBICIN [Suspect]
     Active Substance: DOXORUBICIN
     Indication: SARCOMA METASTATIC
     Route: 065
  9. HOLOXAN 1000MG INJ (IFOSFAMIDE) [Suspect]
     Active Substance: IFOSFAMIDE
     Indication: SOFT TISSUE SARCOMA

REACTIONS (1)
  - Metal poisoning [Unknown]
